FAERS Safety Report 7565584-3 (Version None)
Quarter: 2011Q2

REPORT INFORMATION
  Report Type: 
  Country: None (occurrence: None)
  Receive Date: 20110615
  Receipt Date: 20110610
  Transmission Date: 20111010
  Serious: Yes (Hospitalization)
  Sender: FDA-Public Use
  Company Number: 2011AP001109

PATIENT
  Age: 54 Year
  Sex: Male

DRUGS (4)
  1. LEFLUNOMIDE [Suspect]
     Indication: RHEUMATOID ARTHRITIS
     Dosage: 20 MG; PO
     Route: 048
     Dates: start: 20100520, end: 20110120
  2. METHOTREXATE [Concomitant]
  3. PREDNISOLONE [Concomitant]
  4. OMEPRAZOLE [Concomitant]

REACTIONS (2)
  - CEREBROVASCULAR ACCIDENT [None]
  - ISCHAEMIC STROKE [None]
